FAERS Safety Report 10574906 (Version 1)
Quarter: 2014Q4

REPORT INFORMATION
  Report Type: Spontaneous
  Country: GB (occurrence: GB)
  Receive Date: 20141110
  Receipt Date: 20141110
  Transmission Date: 20150529
  Serious: Yes (Disabling)
  Sender: FDA-Public Use
  Company Number: GB-AUROBINDO-AUR-APL-2014-11657

PATIENT
  Age: 64 Year
  Sex: Male

DRUGS (2)
  1. SIMVASTATIN. [Suspect]
     Active Substance: SIMVASTATIN
     Indication: BLOOD CHOLESTEROL INCREASED
     Dosage: 25 MG, UNK
     Route: 048
  2. SIMVASTATIN. [Suspect]
     Active Substance: SIMVASTATIN
     Dosage: UNK
     Route: 065

REACTIONS (10)
  - Psychiatric symptom [Unknown]
  - Quality of life decreased [Unknown]
  - Myalgia [Unknown]
  - Self esteem decreased [Unknown]
  - Tenderness [Unknown]
  - Rash [Unknown]
  - Impaired work ability [Unknown]
  - Flushing [Unknown]
  - Fatigue [Unknown]
  - Asthenia [Unknown]
